FAERS Safety Report 5301249-6 (Version None)
Quarter: 2007Q2

REPORT INFORMATION
  Report Type: 
  Country: None (occurrence: None)
  Receive Date: 20070418
  Receipt Date: 20070411
  Transmission Date: 20071010
  Serious: Yes (Other)
  Sender: FDA-Public Use
  Company Number: SG-PFIZER INC-2007029673

PATIENT
  Age: 26 Year
  Sex: Female

DRUGS (5)
  1. SULFASALAZINE [Suspect]
     Dosage: DAILY DOSE:2GRAM
     Route: 048
     Dates: start: 20060908, end: 20060923
  2. PREDNISOLONE [Concomitant]
     Route: 048
  3. FAMOTIDINE [Concomitant]
     Route: 048
     Dates: start: 20060920, end: 20060928
  4. NAPROXEN [Concomitant]
     Route: 048
     Dates: start: 20060920, end: 20060928
  5. PARACETAMOL [Concomitant]
     Route: 048
     Dates: start: 20060904, end: 20060929

REACTIONS (3)
  - LIVER FUNCTION TEST ABNORMAL [None]
  - PYREXIA [None]
  - RASH MACULO-PAPULAR [None]
